FAERS Safety Report 5956310-X (Version None)
Quarter: 2008Q4

REPORT INFORMATION
  Report Type: 
  Country: None (occurrence: None)
  Receive Date: 20081118
  Receipt Date: 20081107
  Transmission Date: 20090506
  Serious: Yes (Hospitalization, Other)
  Sender: FDA-Public Use
  Company Number: PHHY2008JP26611

PATIENT
  Age: 39 Year
  Sex: Male

DRUGS (6)
  1. ZOMETA [Suspect]
     Indication: METASTASES TO BONE
  2. FLUTAMIDE [Concomitant]
  3. STRONTIUM [Concomitant]
     Indication: METASTASES TO BONE
  4. CHEMOTHERAPEUTICS NOS [Concomitant]
  5. DOCETAXEL [Concomitant]
     Dosage: UNK
     Dates: start: 20080626
  6. DOCETAXEL [Concomitant]
     Dosage: UNK
     Dates: start: 20080626

REACTIONS (2)
  - PROSTATIC SPECIFIC ANTIGEN INCREASED [None]
  - TETANY [None]
